FAERS Safety Report 5267209-9 (Version None)
Quarter: 2007Q1

REPORT INFORMATION
  Report Type: 
  Country: None (occurrence: None)
  Receive Date: 20070316
  Receipt Date: 20070315
  Transmission Date: 20070707
  Serious: Yes (Other)
  Sender: FDA-Public Use
  Company Number: 200711122EU

PATIENT
  Age: 45 Year
  Sex: Female

DRUGS (5)
  1. NICODERM [Suspect]
     Indication: SMOKING CESSATION THERAPY
     Dosage: 1PAT PER DAY
     Route: 062
     Dates: start: 20070201
  2. CRESTOR [Concomitant]
     Indication: BLOOD CHOLESTEROL INCREASED
     Dosage: 10MG PER DAY
     Dates: start: 20040101
  3. ZYPREXA [Concomitant]
     Indication: SCHIZOPHRENIA
     Dosage: 30MG PER DAY
     Dates: start: 20010101
  4. VALPROIC ACID [Concomitant]
     Indication: EPILEPSY
     Dosage: 1000MG PER DAY
     Dates: start: 19990101
  5. TEGRETOL [Concomitant]
     Indication: EPILEPSY
     Dosage: 800MG PER DAY
     Dates: start: 19990101

REACTIONS (3)
  - ABNORMAL DREAMS [None]
  - HALLUCINATION, AUDITORY [None]
  - THINKING ABNORMAL [None]
